FAERS Safety Report 5138383-X (Version None)
Quarter: 2006Q4

REPORT INFORMATION
  Report Type: 
  Country: None (occurrence: None)
  Receive Date: 20061030
  Receipt Date: 20060210
  Transmission Date: 20070319
  Serious: No
  Sender: FDA-Public Use
  Company Number: US-GLAXOSMITHKLINE-A0593976A

PATIENT
  Age: 22 Year
  Sex: Male
  Weight: 100 kg

DRUGS (4)
  1. ADVAIR HFA [Suspect]
     Indication: DRUG USE FOR UNKNOWN INDICATION
     Route: 055
     Dates: start: 20050101, end: 20051006
  2. ALLEGRA-D 12 HOUR [Concomitant]
  3. NASONEX [Concomitant]
     Dosage: 2PUFF PER DAY
  4. PROVENTIL [Concomitant]

REACTIONS (1)
  - SEXUAL DYSFUNCTION [None]
